FAERS Safety Report 10592799 (Version 2)
Quarter: 2015Q3

REPORT INFORMATION
  Report Type: Spontaneous
  Country: FR (occurrence: FR)
  Receive Date: 20141119
  Receipt Date: 20150916
  Transmission Date: 20151125
  Serious: Yes (Other)
  Sender: FDA-Public Use
  Company Number: FR-GE HEALTHCARE MEDICAL DIAGNOSTICS-OMPQ-PR-1410S-1320

PATIENT
  Age: 56 Year
  Sex: Male

DRUGS (12)
  1. LOVENOX [Suspect]
     Active Substance: ENOXAPARIN SODIUM
     Route: 058
     Dates: start: 20140922, end: 20140926
  2. ASPEGIC [Concomitant]
     Active Substance: ASPIRIN DL-LYSINE
     Route: 042
     Dates: start: 20140922, end: 20140922
  3. REOPRO [Suspect]
     Active Substance: ABCIXIMAB
     Route: 042
     Dates: start: 20140922, end: 20140922
  4. SELOKEN [Concomitant]
     Active Substance: METOPROLOL
     Route: 048
     Dates: start: 20140924, end: 20141001
  5. TAHOR [Suspect]
     Active Substance: ATORVASTATIN CALCIUM
     Route: 048
     Dates: start: 20140924, end: 20141001
  6. TRIATEC [Suspect]
     Active Substance: RAMIPRIL
     Route: 048
     Dates: start: 20140924, end: 20141001
  7. EFIENT [Suspect]
     Active Substance: PRASUGREL HYDROCHLORIDE
     Route: 048
     Dates: start: 20140922, end: 20141001
  8. RISORDAN [Suspect]
     Active Substance: ISOSORBIDE DINITRATE
     Route: 042
     Dates: start: 20140922, end: 20140922
  9. HYPNOVEL [Suspect]
     Active Substance: MIDAZOLAM\MIDAZOLAM HYDROCHLORIDE
     Route: 042
     Dates: start: 20140922, end: 20140922
  10. KARDEGIC [Concomitant]
     Active Substance: ASPIRIN LYSINE
     Route: 048
     Dates: start: 20140924
  11. OMNIPAQUE [Suspect]
     Active Substance: IOHEXOL
     Indication: ACUTE CORONARY SYNDROME
     Route: 042
     Dates: start: 20140922, end: 20140922
  12. OMNIPAQUE [Suspect]
     Active Substance: IOHEXOL
     Indication: DIAGNOSTIC PROCEDURE

REACTIONS (1)
  - Thrombocytopenia [Recovered/Resolved]

NARRATIVE: CASE EVENT DATE: 20141001
